FAERS Safety Report 7511039-1 (Version None)
Quarter: 2011Q2

REPORT INFORMATION
  Report Type: 
  Country: None (occurrence: None)
  Receive Date: 20110531
  Receipt Date: 20110526
  Transmission Date: 20111010
  Serious: No
  Sender: FDA-Public Use
  Company Number: US-PFIZER INC-2011115469

PATIENT
  Sex: Female

DRUGS (1)
  1. AROMASIN [Suspect]
     Indication: BREAST CANCER
     Dosage: UNK
     Route: 048
     Dates: start: 20110101

REACTIONS (1)
  - PARAESTHESIA [None]
